FAERS Safety Report 4631248-9 (Version None)
Quarter: 2005Q2

REPORT INFORMATION
  Report Type: 
  Country: None (occurrence: None)
  Receive Date: 20050407
  Receipt Date: 20050407
  Transmission Date: 20051028
  Serious: Yes (Other)
  Sender: FDA-Public Use
  Company Number: None

PATIENT
  Age: 60 Year
  Sex: Male

DRUGS (2)
  1. GLEEVEC [Suspect]
     Indication: MULTIPLE MYELOMA
     Dosage: I.V.
     Route: 042
     Dates: start: 20050301
  2. GLEEVEC [Suspect]
     Indication: SYNOVIAL SARCOMA METASTATIC
     Dosage: I.V.
     Route: 042
     Dates: start: 20050301

REACTIONS (5)
  - ANOREXIA [None]
  - FATIGUE [None]
  - HEPATITIS [None]
  - JAUNDICE [None]
  - MALAISE [None]
